FAERS Safety Report 21614965 (Version 1)
Quarter: 2022Q4

REPORT INFORMATION
  Report Type: Spontaneous
  Country: RO (occurrence: None)
  Receive Date: 20221118
  Receipt Date: 20221118
  Transmission Date: 20230112
  Serious: Yes (Other)
  Sender: FDA-Public Use
  Company Number: 2022A380620

PATIENT
  Age: 48 Year
  Sex: Male

DRUGS (2)
  1. DAPAGLIFLOZIN [Suspect]
     Active Substance: DAPAGLIFLOZIN
     Indication: Type 2 diabetes mellitus
     Route: 048
  2. METFORMIN [Concomitant]
     Active Substance: METFORMIN HYDROCHLORIDE

REACTIONS (8)
  - Peripheral arterial occlusive disease [Unknown]
  - Diabetic retinopathy [Unknown]
  - Carotid arteriosclerosis [Unknown]
  - Coronary artery disease [Unknown]
  - Restenosis [Unknown]
  - Blood glucose abnormal [Unknown]
  - Blood creatinine abnormal [Unknown]
  - Glomerular filtration rate abnormal [Unknown]
